FAERS Safety Report 8271240-9 (Version None)
Quarter: 2012Q2

REPORT INFORMATION
  Report Type: 
  Country: None (occurrence: None)
  Receive Date: 20120410
  Receipt Date: 20120405
  Transmission Date: 20120825
  Serious: Yes (Hospitalization, Other)
  Sender: FDA-Public Use
  Company Number: US-PFIZER INC-2012045312

PATIENT
  Sex: Female
  Weight: 112 kg

DRUGS (21)
  1. ACETYLSALICYLIC ACID [Concomitant]
     Dosage: 325 MG, DAILY
  2. SEROQUEL [Concomitant]
     Indication: GASTRIC ULCER
     Dosage: 25 MG, UNK
  3. CARAFATE [Concomitant]
     Dosage: 1 G, 4X/DAY
  4. KLONOPIN [Concomitant]
     Dosage: 1 MG, 2X/DAY
  5. EFFEXOR XR [Suspect]
     Indication: DEPRESSION
     Dosage: UNK
     Route: 048
  6. RISPERIDONE [Suspect]
     Dosage: UNK
  7. NITROSTAT [Concomitant]
     Dosage: 0.4 MG, UNK
  8. WELLBUTRIN [Concomitant]
     Dosage: UNK, DAILY
  9. REMERON [Concomitant]
     Dosage: 30 MG, DAILY
  10. LITHIUM [Suspect]
     Dosage: UNK
  11. ALAVERT [Concomitant]
     Dosage: 60 MG, DAILY
  12. NEXIUM [Concomitant]
     Dosage: 40 MG, 2X/DAY
  13. SYNTHROID [Concomitant]
     Indication: THYROID DISORDER
     Dosage: 75 UG, DAILY
  14. LISINOPRIL [Concomitant]
     Dosage: 50 MG, 3X/DAY
  15. IMDUR [Concomitant]
     Dosage: 15 MG, DAILY
  16. PLAVIX [Concomitant]
     Dosage: 75 MG, DAILY
  17. PAXIL [Concomitant]
     Dosage: 500 MG, 2X/DAY
  18. CHORIONIC GONADOTROPHIN [Concomitant]
     Indication: HEADACHE
     Dosage: UNK, AS NEEDED
  19. HYDROCHLOROTHIAZIDE [Concomitant]
     Dosage: 12.5 MG, DAILY
  20. ZOCOR [Concomitant]
     Dosage: 20 MG, DAILY
  21. NEURONTIN [Concomitant]
     Indication: NEURALGIA
     Dosage: 300 MG, 3X/DAY

REACTIONS (6)
  - TOXICITY TO VARIOUS AGENTS [None]
  - ABNORMAL BEHAVIOUR [None]
  - SUICIDE ATTEMPT [None]
  - RENAL DISORDER [None]
  - WEIGHT INCREASED [None]
  - MALAISE [None]
